FAERS Safety Report 16712623 (Version 6)
Quarter: 2019Q3

REPORT INFORMATION
  Report Type: Report from Study
  Country: CL (occurrence: CL)
  Receive Date: 20190816
  Receipt Date: 20190925
  Transmission Date: 20191004
  Serious: Yes (Disabling, Other)
  Sender: FDA-Public Use
  Company Number: PHHY2019CL187310

PATIENT
  Age: 66 Year
  Sex: Female
  Weight: 60 kg

DRUGS (11)
  1. VINORELBINE [Concomitant]
     Active Substance: VINORELBINE TARTRATE
     Indication: PRODUCT USED FOR UNKNOWN INDICATION
     Route: 065
  2. LETROZOLE. [Concomitant]
     Active Substance: LETROZOLE
     Indication: PRODUCT USED FOR UNKNOWN INDICATION
     Dosage: UNK
     Route: 065
     Dates: start: 201510
  3. CAPECITABINE. [Concomitant]
     Active Substance: CAPECITABINE
     Indication: PRODUCT USED FOR UNKNOWN INDICATION
     Dosage: UNK
     Route: 065
     Dates: start: 201610
  4. PACLITAXEL. [Concomitant]
     Active Substance: PACLITAXEL
     Indication: PRODUCT USED FOR UNKNOWN INDICATION
     Route: 065
  5. ATORVASTATINE [Concomitant]
     Active Substance: ATORVASTATIN
     Indication: PRODUCT USED FOR UNKNOWN INDICATION
     Dosage: 10 MG, UNK
     Route: 065
  6. DOLOTEN [Concomitant]
     Active Substance: ACETAMINOPHEN\TRAMADOL
     Indication: PRODUCT USED FOR UNKNOWN INDICATION
     Dosage: 1 MG, PER NIGHT
     Route: 065
  7. KISQALI [Suspect]
     Active Substance: RIBOCICLIB
     Dosage: 600 MG, QD
     Route: 048
  8. EUTIROX [Concomitant]
     Active Substance: LEVOTHYROXINE SODIUM
     Indication: PRODUCT USED FOR UNKNOWN INDICATION
     Dosage: 75 MG, UNK
     Route: 065
  9. KISQALI [Suspect]
     Active Substance: RIBOCICLIB
     Indication: BREAST CANCER
     Dosage: 600 MG, QD (3 TABLETS)
     Route: 048
     Dates: start: 20190725
  10. FULVESTRANT. [Concomitant]
     Active Substance: FULVESTRANT
     Indication: BREAST CANCER
     Dosage: UNK
     Route: 065
  11. EXEMESTANE. [Concomitant]
     Active Substance: EXEMESTANE
     Indication: PRODUCT USED FOR UNKNOWN INDICATION
     Route: 065

REACTIONS (30)
  - Nasopharyngitis [Unknown]
  - Insomnia [Unknown]
  - Breast pain [Unknown]
  - Asthma [Not Recovered/Not Resolved]
  - Leukaemia [Unknown]
  - Haemoglobin distribution width increased [Unknown]
  - Diarrhoea [Recovered/Resolved]
  - Diarrhoea [Recovered/Resolved]
  - Nervousness [Not Recovered/Not Resolved]
  - Constipation [Recovered/Resolved]
  - Dermatitis allergic [Unknown]
  - Colitis [Recovering/Resolving]
  - Constipation [Recovering/Resolving]
  - Blood alkaline phosphatase increased [Unknown]
  - White blood cell count decreased [Unknown]
  - Nausea [Unknown]
  - Inflammation [Unknown]
  - Lymphadenopathy [Recovered/Resolved]
  - Gamma-glutamyltransferase increased [Unknown]
  - Anisocytosis [Unknown]
  - Fine motor skill dysfunction [Unknown]
  - Acne [Unknown]
  - Constipation [Recovered/Resolved]
  - Blood triglycerides increased [Unknown]
  - Carbohydrate antigen 15-3 increased [Unknown]
  - Dysphonia [Recovered/Resolved]
  - Respiratory tract congestion [Unknown]
  - Diarrhoea [Recovered/Resolved]
  - Breast mass [Unknown]
  - Tremor [Unknown]

NARRATIVE: CASE EVENT DATE: 20190726
